FAERS Safety Report 4467658-2 (Version None)
Quarter: 2004Q4

REPORT INFORMATION
  Report Type: 
  Country: None (occurrence: None)
  Receive Date: 20041004
  Receipt Date: 20041004
  Transmission Date: 20050328
  Serious: Yes (Life-Threatening, Hospitalization)
  Sender: FDA-Public Use
  Company Number: None

PATIENT
  Age: 58 Year
  Sex: Male
  Weight: 86.1834 kg

DRUGS (1)
  1. VIOXX [Suspect]
     Indication: BACK PAIN
     Dosage: 25 MG T TIME ORAL
     Route: 048
     Dates: start: 19991001, end: 20010828

REACTIONS (2)
  - PULMONARY EMBOLISM [None]
  - THROMBOSIS [None]
